FAERS Safety Report 24312019 (Version 1)
Quarter: 2024Q3

REPORT INFORMATION
  Report Type: Report from Study
  Country: US (occurrence: US)
  Receive Date: 20240912
  Receipt Date: 20240912
  Transmission Date: 20241016
  Serious: Yes (Other)
  Sender: JOHNSON AND JOHNSON
  Company Number: US-JNJFOC-20240920072

PATIENT
  Age: 53 Year
  Sex: Female

DRUGS (1)
  1. TALVEY [Suspect]
     Active Substance: TALQUETAMAB-TGVS
     Indication: Product used for unknown indication
     Route: 058
     Dates: start: 20210104, end: 20220603

REACTIONS (4)
  - Pyrexia [Recovered/Resolved]
  - Onychomadesis [Recovering/Resolving]
  - Ageusia [Recovering/Resolving]
  - Weight decreased [Recovering/Resolving]
